FAERS Safety Report 14900214 (Version 1)
Quarter: 2018Q2

REPORT INFORMATION
  Report Type: Other
  Country: CA (occurrence: CA)
  Receive Date: 20180516
  Receipt Date: 20180516
  Transmission Date: 20180711
  Serious: Yes (Life-Threatening, Hospitalization, Other)
  Sender: FDA-Public Use
  Company Number: CA-APOTEX-2018AP013187

PATIENT
  Age: 37 Year
  Sex: Female

DRUGS (10)
  1. KETOTIFEN FUMARATE. [Concomitant]
     Active Substance: KETOTIFEN FUMARATE
     Indication: CHRONIC SPONTANEOUS URTICARIA
     Dosage: 1 DF, BID
     Route: 048
  2. SALBUTAMOL SULFATE [Concomitant]
     Active Substance: ALBUTEROL SULFATE
     Indication: ASTHMA
     Dosage: 1 DF, UNK
     Route: 050
  3. SINGULAIR [Concomitant]
     Active Substance: MONTELUKAST SODIUM
     Indication: ASTHMA
     Dosage: 1 DF, QD
     Route: 048
  4. PROPRANOLOL [Concomitant]
     Active Substance: PROPRANOLOL HYDROCHLORIDE
     Indication: MIGRAINE
     Dosage: 1 DF, QD
     Route: 048
  5. ZANTAC [Concomitant]
     Active Substance: RANITIDINE HYDROCHLORIDE
     Indication: CHRONIC SPONTANEOUS URTICARIA
     Dosage: 1 DF, QD
     Route: 048
  6. LANSOPRAZOLE. [Suspect]
     Active Substance: LANSOPRAZOLE
     Indication: CHRONIC SPONTANEOUS URTICARIA
     Dosage: 1 DF, BID
     Route: 048
  7. BILASTINE [Concomitant]
     Active Substance: BILASTINE
     Indication: CHRONIC SPONTANEOUS URTICARIA
     Dosage: 1 DF, BID
     Route: 048
  8. SYMBICORT [Concomitant]
     Active Substance: BUDESONIDE\FORMOTEROL FUMARATE DIHYDRATE
     Indication: ASTHMA
     Dosage: 1 DF, QID
     Route: 050
  9. BENADRYL [Concomitant]
     Active Substance: DIPHENHYDRAMINE HYDROCHLORIDE
     Indication: CHRONIC SPONTANEOUS URTICARIA
     Dosage: 1 DF, UNK
     Route: 048
  10. REACTINE                           /00884302/ [Concomitant]
     Active Substance: CETIRIZINE HYDROCHLORIDE
     Indication: CHRONIC SPONTANEOUS URTICARIA
     Dosage: 1 DF, BID
     Route: 048

REACTIONS (10)
  - Loss of consciousness [Recovered/Resolved]
  - Anaphylactic shock [Recovered/Resolved]
  - Urticaria [Recovered/Resolved]
  - Anaphylactic reaction [Recovered/Resolved]
  - Abdominal discomfort [Recovered/Resolved]
  - Throat tightness [Recovered/Resolved]
  - Hypersensitivity [Recovered/Resolved]
  - Swelling [Recovered/Resolved]
  - Dyspnoea [Recovered/Resolved]
  - Pruritus [Recovered/Resolved]
